FAERS Safety Report 4691308-3 (Version None)
Quarter: 2005Q2

REPORT INFORMATION
  Report Type: 
  Country: None (occurrence: None)
  Receive Date: 20050610
  Receipt Date: 20050531
  Transmission Date: 20051028
  Serious: Yes (Other)
  Sender: FDA-Public Use
  Company Number: 2005082701

PATIENT
  Sex: Male

DRUGS (3)
  1. NORVASC [Suspect]
     Indication: HYPERTENSION
     Dosage: 5 MG (5 MG, 1 IN 1D), ORAL
     Route: 048
     Dates: start: 20050201
  2. PREDNISONE [Suspect]
     Indication: HYPERTENSION
     Dosage: ORAL
     Route: 048
  3. PREDNISONE [Suspect]
     Indication: PROSTATIC DISORDER
     Dosage: ORAL
     Route: 048

REACTIONS (1)
  - LICHEN PLANUS [None]
